FAERS Safety Report 9935172 (Version 1)
Quarter: 2014Q1

REPORT INFORMATION
  Report Type: Spontaneous
  Country: US (occurrence: US)
  Receive Date: 20140228
  Receipt Date: 20140228
  Transmission Date: 20141002
  Serious: No
  Sender: FDA-Public Use
  Company Number: US-MYLANLABS-2014S1000676

PATIENT
  Age: 64 Year
  Sex: Female

DRUGS (2)
  1. TRANEXAMIC ACID [Suspect]
     Indication: HAEMORRHAGE PROPHYLAXIS
     Route: 026
     Dates: start: 20131203, end: 20131203
  2. TRANEXAMIC ACID [Suspect]
     Indication: OFF LABEL USE
     Route: 026
     Dates: start: 20131203, end: 20131203

REACTIONS (2)
  - Wound infection [Not Recovered/Not Resolved]
  - Incorrect route of drug administration [Recovered/Resolved]
